FAERS Safety Report 8104605-6 (Version None)
Quarter: 2012Q1

REPORT INFORMATION
  Report Type: 
  Country: None (occurrence: None)
  Receive Date: 20120130
  Receipt Date: 20120119
  Transmission Date: 20120608
  Serious: Yes (Life-Threatening, Hospitalization)
  Sender: FDA-Public Use
  Company Number: 2012MA001059

PATIENT
  Age: 26 Year
  Sex: Male

DRUGS (5)
  1. METAMIZOLE (METAMIZOLE) [Suspect]
     Indication: PHANTOM PAIN
     Dosage: 500 MG; ; PO
     Route: 048
     Dates: start: 20110401, end: 20110701
  2. TRAMADOL HYDROCHLORIDE [Suspect]
     Indication: PHANTOM PAIN
     Dosage: 100 MG; ; PO
     Route: 048
     Dates: start: 20110401, end: 20110701
  3. IBUPROFEN [Suspect]
     Indication: PHANTOM PAIN
     Dosage: 600 MG; ; PO
     Route: 048
     Dates: start: 20110401, end: 20110701
  4. PREGABALIN [Suspect]
     Indication: PHANTOM PAIN
     Dosage: 300 MG; ; PO
     Route: 048
     Dates: start: 20110401, end: 20110701
  5. AMOXICILLIN [Concomitant]

REACTIONS (1)
  - AGRANULOCYTOSIS [None]
